FAERS Safety Report 7963419-8 (Version None)
Quarter: 2011Q4

REPORT INFORMATION
  Report Type: 
  Country: None (occurrence: None)
  Receive Date: 20111205
  Receipt Date: 20111122
  Transmission Date: 20120403
  Serious: Yes (Life-Threatening, Other)
  Sender: FDA-Public Use
  Company Number: MSTR-NO-1111S-0262

PATIENT
  Age: 61 Year
  Sex: Male

DRUGS (4)
  1. OXYCODONE HCL [Concomitant]
  2. ZOLEDRONIC ACID HYDRATE (ZOLEDRONIC ACID) [Concomitant]
  3. ETODOLAC [Concomitant]
  4. METASTRON [Suspect]
     Indication: METASTATIC PAIN
     Dosage: 98 MBQ, SINGLE DOSE, INTRAVENOUS
     Route: 042
     Dates: start: 20090625, end: 20090625

REACTIONS (3)
  - BONE MARROW FAILURE [None]
  - DISSEMINATED INTRAVASCULAR COAGULATION [None]
  - DISEASE PROGRESSION [None]
